FAERS Safety Report 10229057 (Version 1)
Quarter: 2014Q2

REPORT INFORMATION
  Report Type: Report from Study
  Country: DE (occurrence: DE)
  Receive Date: 20140610
  Receipt Date: 20140610
  Transmission Date: 20141212
  Serious: Yes (Hospitalization)
  Sender: FDA-Public Use
  Company Number: DE-ABBVIE-14P-062-1243847-00

PATIENT
  Age: 68 Year
  Sex: Male
  Weight: 106 kg

DRUGS (1)
  1. HUMIRA [Suspect]
     Indication: PSORIASIS
     Route: 058

REACTIONS (3)
  - Ingrowing nail [Unknown]
  - Erysipelas [Unknown]
  - Lymphangitis [Unknown]
